FAERS Safety Report 15458287 (Version 4)
Quarter: 2019Q1

REPORT INFORMATION
  Report Type: Spontaneous
  Country: DE (occurrence: DE)
  Receive Date: 20181003
  Receipt Date: 20190113
  Transmission Date: 20190417
  Serious: Yes (Other)
  Sender: FDA-Public Use
  Company Number: DE-SUN PHARMACEUTICAL INDUSTRIES LTD-2018RR-185152

PATIENT
  Age: 72 Year
  Sex: Female
  Weight: 57 kg

DRUGS (3)
  1. VALSARTAN BASICS 80 MG FILMTABLETTEN [Suspect]
     Active Substance: VALSARTAN
     Indication: HYPERTONIA
     Dosage: 1 TABLET PER DAY IN THE MORNING
     Route: 048
     Dates: start: 20180903, end: 20180910
  2. L-THYROXIN 25 UG HENNING [Concomitant]
     Indication: HYPOTHYROIDISM
     Dosage: 1 DF, QD, FOR MANY YEARS
     Route: 048
  3. L-THYROXIN 25 UG HENNING [Concomitant]
     Dosage: 1 DF, QD, FOR MANY YEARS
     Route: 048

REACTIONS (4)
  - Product substitution issue [Unknown]
  - Nausea [Recovered/Resolved]
  - Vertigo [Recovered/Resolved]
  - Headache [Recovered/Resolved]

NARRATIVE: CASE EVENT DATE: 20180905
